FAERS Safety Report 4476920-9 (Version None)
Quarter: 2004Q4

REPORT INFORMATION
  Report Type: 
  Country: None (occurrence: None)
  Receive Date: 20041012
  Receipt Date: 20041001
  Transmission Date: 20050328
  Serious: Yes (Other)
  Sender: FDA-Public Use
  Company Number: 163-20785-04100145

PATIENT

DRUGS (4)
  1. THALOMID [Suspect]
     Indication: METASTASES TO LUNG
     Dosage: 200 MG PO QHS DAILY FOR 28 DAYS, Q 28 DY, START ON DAY 2 OF FIRST COURSE., QHS DAILY FOR 28D,Q28D, O
     Route: 048
     Dates: start: 20011009
  2. THALOMID [Suspect]
     Indication: METASTATIC MALIGNANT MELANOMA
     Dosage: 200 MG PO QHS DAILY FOR 28 DAYS, Q 28 DY, START ON DAY 2 OF FIRST COURSE., QHS DAILY FOR 28D,Q28D, O
     Route: 048
     Dates: start: 20011009
  3. SUGEN 5416 [Suspect]
     Indication: METASTASES TO LUNG
     Dosage: 145 MG/M2 OVER 1 HR TWICE WEEKLY, EVERY WEEK, EVERY 28 DAYS, INTRAVENOUS
     Route: 042
     Dates: start: 20011009
  4. SUGEN 5416 [Suspect]
     Indication: METASTATIC MALIGNANT MELANOMA
     Dosage: 145 MG/M2 OVER 1 HR TWICE WEEKLY, EVERY WEEK, EVERY 28 DAYS, INTRAVENOUS
     Route: 042
     Dates: start: 20011009

REACTIONS (28)
  - ABDOMINAL PAIN [None]
  - ARRHYTHMIA [None]
  - ARTHRALGIA [None]
  - CANCER PAIN [None]
  - CHILLS [None]
  - CONSTIPATION [None]
  - DEHYDRATION [None]
  - DEPRESSED LEVEL OF CONSCIOUSNESS [None]
  - DIZZINESS [None]
  - DYSPNOEA [None]
  - DYSURIA [None]
  - FATIGUE [None]
  - HEADACHE [None]
  - HYPERHIDROSIS [None]
  - HYPOMAGNESAEMIA [None]
  - HYPOPHOSPHATAEMIA [None]
  - MYALGIA [None]
  - NAUSEA [None]
  - OEDEMA [None]
  - PERIPHERAL SENSORY NEUROPATHY [None]
  - PHLEBITIS [None]
  - PHOTOPHOBIA [None]
  - PLEURITIC PAIN [None]
  - RASH [None]
  - RHINITIS ALLERGIC [None]
  - SINUS TACHYCARDIA [None]
  - SKIN DESQUAMATION [None]
  - VOMITING [None]
